FAERS Safety Report 11061696 (Version 2)
Quarter: 2015Q3

REPORT INFORMATION
  Report Type: Spontaneous
  Country: JP (occurrence: JP)
  Receive Date: 20150424
  Receipt Date: 20150814
  Transmission Date: 20151125
  Serious: Yes (Hospitalization)
  Sender: FDA-Public Use
  Company Number: JP-AMGEN-JPNSP2015039632

PATIENT
  Age: 66 Year
  Sex: Female
  Weight: 63 kg

DRUGS (2)
  1. RANMARK [Suspect]
     Active Substance: DENOSUMAB
     Indication: BREAST CANCER
  2. RANMARK [Suspect]
     Active Substance: DENOSUMAB
     Indication: METASTASES TO BONE
     Dosage: 120 MG, UNK
     Route: 065
     Dates: start: 20140201

REACTIONS (1)
  - Atypical femur fracture [Not Recovered/Not Resolved]

NARRATIVE: CASE EVENT DATE: 20150416
